FAERS Safety Report 25772896 (Version 1)
Quarter: 2025Q3

REPORT INFORMATION
  Report Type: Spontaneous
  Country: US (occurrence: US)
  Receive Date: 20250908
  Receipt Date: 20250908
  Transmission Date: 20251020
  Serious: No
  Sender: MERCK SHARP & DOHME LLC
  Company Number: US-009507513-2327012

PATIENT
  Age: 5 Year
  Sex: Female

DRUGS (5)
  1. TEMOZOLOMIDE [Suspect]
     Active Substance: TEMOZOLOMIDE
     Indication: Neuroblastoma recurrent
  2. DINUTUXIMAB [Concomitant]
     Active Substance: DINUTUXIMAB
     Indication: Neuroblastoma recurrent
     Route: 042
  3. IRINOTECAN [Concomitant]
     Active Substance: IRINOTECAN
     Indication: Neuroblastoma recurrent
     Route: 042
  4. granulocyte-macrophage colony-stimulating factor (GM-CSF) [Concomitant]
     Indication: Neuroblastoma recurrent
     Route: 058
  5. LORLATINIB [Concomitant]
     Active Substance: LORLATINIB
     Indication: Neuroblastoma recurrent

REACTIONS (1)
  - Product use in unapproved indication [Unknown]
